FAERS Safety Report 23165894 (Version 6)
Quarter: 2025Q4

REPORT INFORMATION
  Report Type: Spontaneous
  Country: EU (occurrence: EU)
  Receive Date: 20231109
  Receipt Date: 20251231
  Transmission Date: 20260117
  Serious: Yes (Other)
  Sender: PFIZER
  Company Number: EU-GILEAD-2023-0649490

PATIENT
  Age: 4 Decade
  Sex: Female

DRUGS (6)
  1. ISAVUCONAZONIUM SULFATE [Suspect]
     Active Substance: ISAVUCONAZONIUM SULFATE
     Indication: Tracheobronchitis
     Dosage: UNK
     Route: 065
  2. ISAVUCONAZONIUM SULFATE [Suspect]
     Active Substance: ISAVUCONAZONIUM SULFATE
     Indication: Aspergillus infection
  3. ANIDULAFUNGIN [Suspect]
     Active Substance: ANIDULAFUNGIN
     Indication: Tracheobronchitis
     Dosage: UNK
     Route: 065
  4. ANIDULAFUNGIN [Suspect]
     Active Substance: ANIDULAFUNGIN
     Indication: Aspergillus infection
  5. AMBISOME [Suspect]
     Active Substance: AMPHOTERICIN B
     Indication: Tracheobronchitis
     Dosage: UNK ((DURATION 6 WEEKS))
     Route: 042
  6. AMBISOME [Suspect]
     Active Substance: AMPHOTERICIN B
     Indication: Aspergillus infection
     Dosage: UNK
     Route: 055

REACTIONS (5)
  - Maternal exposure during pregnancy [Recovered/Resolved]
  - Uterine rupture [Unknown]
  - Foetal death [Recovered/Resolved]
  - Placental insufficiency [Recovered/Resolved]
  - Off label use [Unknown]
